FAERS Safety Report 9351129 (Version 2)
Quarter: 2013Q4

REPORT INFORMATION
  Report Type: Spontaneous
  Country: US (occurrence: US)
  Receive Date: 20130617
  Receipt Date: 20131219
  Transmission Date: 20140711
  Serious: Yes (Hospitalization)
  Sender: FDA-Public Use
  Company Number: US-BAYER-2013-073754

PATIENT
  Age: 19 Year
  Sex: Female
  Weight: 61.22 kg

DRUGS (7)
  1. YASMIN [Suspect]
     Indication: ACNE
     Dosage: UNK
     Dates: start: 200710, end: 201206
  2. YASMIN [Suspect]
     Indication: POLYCYSTIC OVARIES
  3. YASMIN [Suspect]
     Indication: MENSTRUAL CYCLE MANAGEMENT
  4. OCELLA [Suspect]
     Indication: ACNE
     Dosage: UNK
     Dates: start: 200710, end: 201206
  5. OCELLA [Suspect]
     Indication: POLYCYSTIC OVARIES
  6. OXYCODONE [Concomitant]
  7. ZOFRAN [Concomitant]

REACTIONS (5)
  - Pulmonary embolism [None]
  - Pulmonary infarction [None]
  - Painful respiration [None]
  - Pain [None]
  - Pain [None]
